FAERS Safety Report 14261037 (Version 1)
Quarter: 2017Q4

REPORT INFORMATION
  Report Type: Spontaneous
  Country: UA (occurrence: UA)
  Receive Date: 20171207
  Receipt Date: 20171207
  Transmission Date: 20180321
  Serious: Yes (Other)
  Sender: FDA-Public Use
  Company Number: UA-ABBVIE-17K-269-1863281-00

PATIENT
  Sex: Female

DRUGS (4)
  1. MOVALIS [Concomitant]
     Active Substance: MELOXICAM
     Indication: PRODUCT USED FOR UNKNOWN INDICATION
  2. OLFEN [Concomitant]
     Active Substance: DICLOFENAC SODIUM
     Indication: PRODUCT USED FOR UNKNOWN INDICATION
  3. HUMIRA [Suspect]
     Active Substance: ADALIMUMAB
     Indication: PSORIATIC ARTHROPATHY
     Route: 058
     Dates: start: 2016, end: 20170115
  4. ELOCOM [Concomitant]
     Active Substance: MOMETASONE FUROATE
     Indication: PSORIATIC ARTHROPATHY
     Route: 061

REACTIONS (3)
  - Exposure during pregnancy [Unknown]
  - Foetal death [Unknown]
  - Abortion induced [Unknown]

NARRATIVE: CASE EVENT DATE: 201702
